FAERS Safety Report 18000672 (Version 4)
Quarter: 2021Q2

REPORT INFORMATION
  Report Type: Spontaneous
  Country: US (occurrence: US)
  Receive Date: 20200709
  Receipt Date: 20210423
  Transmission Date: 20210717
  Serious: Yes (Other)
  Sender: FDA-Public Use
  Company Number: US-SA-2020SA173988

PATIENT
  Age: 63 Year
  Sex: Female

DRUGS (27)
  1. KEVZARA [Suspect]
     Active Substance: SARILUMAB
     Indication: RHEUMATOID ARTHRITIS
  2. MORPHINE SULFATE. [Concomitant]
     Active Substance: MORPHINE SULFATE
  3. AMITRIPTYLINE HCL [Concomitant]
     Active Substance: AMITRIPTYLINE
  4. METOPROLOL SUCCINATE. [Concomitant]
     Active Substance: METOPROLOL SUCCINATE
  5. POTASSIUM CHLORIDE. [Concomitant]
     Active Substance: POTASSIUM CHLORIDE
  6. ROSUVASTATIN CALCIUM. [Concomitant]
     Active Substance: ROSUVASTATIN CALCIUM
  7. CLOBETASOL PROPIONATE. [Concomitant]
     Active Substance: CLOBETASOL PROPIONATE
  8. AMLODIPINE BESYLATE. [Concomitant]
     Active Substance: AMLODIPINE BESYLATE
  9. CREON [Concomitant]
     Active Substance: PANCRELIPASE AMYLASE\PANCRELIPASE LIPASE\PANCRELIPASE PROTEASE
     Dosage: 36 K?114 K
  10. PLAQUENIL [Concomitant]
     Active Substance: HYDROXYCHLOROQUINE SULFATE
  11. FUROSEMIDE. [Concomitant]
     Active Substance: FUROSEMIDE
  12. FAMOTIDINE. [Concomitant]
     Active Substance: FAMOTIDINE
  13. XELJANZ [Concomitant]
     Active Substance: TOFACITINIB CITRATE
  14. FIORICET [Concomitant]
     Active Substance: ACETAMINOPHEN\BUTALBITAL\CAFFEINE
     Dosage: 50?300?4D
  15. LOSARTAN POTASSIUM. [Concomitant]
     Active Substance: LOSARTAN POTASSIUM
  16. PROMETHAZINE HCL [Concomitant]
     Active Substance: PROMETHAZINE HYDROCHLORIDE
  17. DULOXETINE HCL [Concomitant]
     Active Substance: DULOXETINE HYDROCHLORIDE
  18. CLONAZEPAM. [Concomitant]
     Active Substance: CLONAZEPAM
  19. KEVZARA [Suspect]
     Active Substance: SARILUMAB
     Indication: PSORIATIC ARTHROPATHY
     Dosage: 200 MG, QOW
     Route: 058
     Dates: start: 202006, end: 202008
  20. OMEPRAZOLE. [Concomitant]
     Active Substance: OMEPRAZOLE
  21. METHOTREXATE. [Concomitant]
     Active Substance: METHOTREXATE
  22. RESTASIS [Concomitant]
     Active Substance: CYCLOSPORINE
  23. CELEBREX [Concomitant]
     Active Substance: CELECOXIB
  24. TIZANIDINE HCL [Concomitant]
     Active Substance: TIZANIDINE HYDROCHLORIDE
  25. EZETIMIBE. [Concomitant]
     Active Substance: EZETIMIBE
  26. OXYCODONE AND ACETAMINOPHEN [Concomitant]
     Active Substance: ACETAMINOPHEN\OXYCODONE HYDROCHLORIDE
  27. PREDNISONE. [Concomitant]
     Active Substance: PREDNISONE

REACTIONS (7)
  - Delirium [Unknown]
  - Rheumatoid arthritis [Unknown]
  - Product dose omission issue [Unknown]
  - Dehydration [Unknown]
  - Heat stroke [Unknown]
  - Product use in unapproved indication [Unknown]
  - Fatigue [Unknown]

NARRATIVE: CASE EVENT DATE: 202006
